FAERS Safety Report 25448707 (Version 2)
Quarter: 2025Q3

REPORT INFORMATION
  Report Type: Report from Study
  Country: US (occurrence: US)
  Receive Date: 20250618
  Receipt Date: 20250716
  Transmission Date: 20251021
  Serious: Yes (Other)
  Sender: MERCK SHARP & DOHME LLC
  Company Number: US-009507513-2293230

PATIENT
  Sex: Female
  Weight: 46.72 kg

DRUGS (22)
  1. WINREVAIR [Suspect]
     Active Substance: SOTATERCEPT-CSRK
     Indication: Pulmonary arterial hypertension
     Route: 058
  2. WINREVAIR [Suspect]
     Active Substance: SOTATERCEPT-CSRK
  3. WINREVAIR [Suspect]
     Active Substance: SOTATERCEPT-CSRK
  4. WINREVAIR [Suspect]
     Active Substance: SOTATERCEPT-CSRK
  5. WINREVAIR [Suspect]
     Active Substance: SOTATERCEPT-CSRK
  6. WINREVAIR [Suspect]
     Active Substance: SOTATERCEPT-CSRK
  7. WINREVAIR [Suspect]
     Active Substance: SOTATERCEPT-CSRK
  8. WINREVAIR [Suspect]
     Active Substance: SOTATERCEPT-CSRK
  9. ADEMPAS [Concomitant]
     Active Substance: RIOCIGUAT
  10. GARLIC [Concomitant]
     Active Substance: GARLIC
  11. XARELTO [Suspect]
     Active Substance: RIVAROXABAN
     Dates: end: 2025
  12. estrogen-methyltestosterone [Concomitant]
  13. ALPHAGAN P [Concomitant]
     Active Substance: BRIMONIDINE TARTRATE
  14. PANTOPRAZOLE SODIUM [Concomitant]
     Active Substance: PANTOPRAZOLE SODIUM
  15. probiomax df [Concomitant]
  16. OPSUMIT [Concomitant]
     Active Substance: MACITENTAN
  17. LATANOPROST [Concomitant]
     Active Substance: LATANOPROST
  18. SPIRONOLACTONE [Concomitant]
     Active Substance: SPIRONOLACTONE
  19. ZINC [Concomitant]
     Active Substance: ZINC
  20. NP THYROID [Concomitant]
     Active Substance: LEVOTHYROXINE\LIOTHYRONINE
  21. PROGESTERONE [Concomitant]
     Active Substance: PROGESTERONE
  22. dhea micronized [Concomitant]

REACTIONS (3)
  - Thrombosis [Unknown]
  - Inappropriate schedule of product administration [Unknown]
  - Anaemia [Unknown]

NARRATIVE: CASE EVENT DATE: 20250101
